FAERS Safety Report 5808253-X (Version None)
Quarter: 2008Q3

REPORT INFORMATION
  Report Type: 
  Country: None (occurrence: None)
  Receive Date: 20080709
  Receipt Date: 20080522
  Transmission Date: 20090109
  Serious: Yes (Hospitalization)
  Sender: FDA-Public Use
  Company Number: US023974

PATIENT
  Sex: Male
  Weight: 102.0593 kg

DRUGS (10)
  1. ACTIQ [Suspect]
     Indication: ARTHRALGIA
     Dosage: 400 UG BUCCAL
     Route: 002
     Dates: end: 20021122
  2. ACTIQ [Suspect]
     Indication: ARTHRALGIA
     Dosage: 600 UG QID BUCCAL
     Route: 002
     Dates: start: 20021123, end: 20030101
  3. ACTIQ [Suspect]
     Indication: ARTHRALGIA
     Dosage: USING 3 TO 9 LOZENGES DAILY BUCCAL
     Route: 002
     Dates: start: 20030101, end: 20030708
  4. ACTIQ [Suspect]
     Indication: ARTHRALGIA
     Dosage: 600 UG BUCCAL
     Route: 002
     Dates: start: 20060209, end: 20060312
  5. ACTIQ [Suspect]
     Indication: ARTHRALGIA
     Dosage: 600 UG BID BUCCAL
     Route: 002
     Dates: start: 20060313
  6. DURAGESIC-100 [Suspect]
     Dosage: 100 UG Q1HR TRANSDERMAL
     Route: 062
     Dates: end: 20030708
  7. HYDROCODONE BITARTRATE [Suspect]
     Dosage: 10 MG Q4HR ORAL
     Route: 048
     Dates: end: 20030708
  8. AMBIEN [Concomitant]
  9. ATIVAN [Concomitant]
  10. EFFEXOR [Concomitant]

REACTIONS (6)
  - ARTHRALGIA [None]
  - COGNITIVE DISORDER [None]
  - DEPRESSION [None]
  - DRUG DEPENDENCE [None]
  - REFUSAL OF TREATMENT BY PATIENT [None]
  - TOOTH DISORDER [None]
